FAERS Safety Report 6999085-8 (Version None)
Quarter: 2010Q3

REPORT INFORMATION
  Report Type: 
  Country: None (occurrence: None)
  Receive Date: 20100920
  Receipt Date: 20100910
  Transmission Date: 20110219
  Serious: Yes (Hospitalization)
  Sender: FDA-Public Use
  Company Number: DE-ASTRAZENECA-2009SE01010

PATIENT
  Age: 75 Year
  Sex: Female
  Weight: 83 kg

DRUGS (7)
  1. FELODIPINE [Suspect]
     Indication: HYPERTENSION
     Route: 048
  2. FELODIPINE [Suspect]
     Route: 048
  3. BISOPROLOL [Suspect]
     Indication: HYPERTENSION
     Route: 048
     Dates: end: 20081107
  4. MOXONIDINE [Suspect]
     Indication: HYPERTENSION
     Route: 048
  5. FOLIC ACID [Concomitant]
     Indication: PROPHYLAXIS
     Route: 048
     Dates: end: 20081107
  6. GINGIUM [Concomitant]
     Indication: PROPHYLAXIS
     Route: 048
     Dates: end: 20081107
  7. RAMIPRIL [Concomitant]
     Indication: HYPERTENSION
     Route: 048

REACTIONS (3)
  - OVERDOSE [None]
  - SINUS BRADYCARDIA [None]
  - SYNCOPE [None]
